FAERS Safety Report 10370439 (Version 3)
Quarter: 2014Q3

REPORT INFORMATION
  Report Type: Spontaneous
  Country: JP (occurrence: JP)
  Receive Date: 20140808
  Receipt Date: 20140904
  Transmission Date: 20150326
  Serious: Yes (Hospitalization)
  Sender: FDA-Public Use
  Company Number: JP-JNJFOC-20140800642

PATIENT
  Age: 2 Decade
  Sex: Male

DRUGS (1)
  1. CONCERTA [Suspect]
     Active Substance: METHYLPHENIDATE HYDROCHLORIDE
     Indication: ATTENTION DEFICIT/HYPERACTIVITY DISORDER
     Route: 048
     Dates: start: 201405

REACTIONS (1)
  - Tonsillar hypertrophy [Unknown]

NARRATIVE: CASE EVENT DATE: 2014
